FAERS Safety Report 5894968-4 (Version None)
Quarter: 2008Q3

REPORT INFORMATION
  Report Type: 
  Country: None (occurrence: None)
  Receive Date: 20080924
  Receipt Date: 20080916
  Transmission Date: 20090109
  Serious: Yes (Other)
  Sender: FDA-Public Use
  Company Number: PHBS2006JP19879

PATIENT
  Sex: Male
  Weight: 27 kg

DRUGS (11)
  1. NEORAL [Suspect]
     Indication: HEART TRANSPLANT
     Dosage: 1.1 ML, BID
     Route: 048
     Dates: start: 20000101
  2. NEORAL [Suspect]
     Dosage: UNK
     Route: 048
  3. CELLCEPT [Suspect]
     Indication: HEART TRANSPLANT
     Dosage: 250 MG, BID
     Route: 048
     Dates: start: 20000101
  4. FAMOTIDINE [Suspect]
     Indication: GASTRITIS
     Dosage: 7.5 MG PER DAY
     Route: 048
  5. LASIX [Concomitant]
     Dosage: UNK
  6. COTRIM [Concomitant]
     Indication: INFECTION PROPHYLAXIS
     Dosage: UNK
  7. ISOMENYL [Concomitant]
     Indication: BRADYCARDIA
     Dosage: UNK
  8. THEO-DUR [Concomitant]
     Indication: ASTHMA
     Dosage: UNK
  9. ALFAROL [Concomitant]
     Indication: HYPOCALCAEMIA
     Dosage: UNK
  10. CALCIUM CARBONATE [Concomitant]
  11. MINIPRESS [Concomitant]
     Indication: HYPERTENSION
     Dosage: UNK

REACTIONS (7)
  - ACIDOSIS [None]
  - BLOOD CREATININE INCREASED [None]
  - BLOOD UREA INCREASED [None]
  - CREATININE RENAL CLEARANCE DECREASED [None]
  - HYPERURICAEMIA [None]
  - RENAL IMPAIRMENT [None]
  - RENAL TUBULAR ACIDOSIS [None]
